FAERS Safety Report 8122588-X (Version None)
Quarter: 2012Q1

REPORT INFORMATION
  Report Type: 
  Country: None (occurrence: None)
  Receive Date: 20120208
  Receipt Date: 20120131
  Transmission Date: 20120608
  Serious: Yes (Other)
  Sender: FDA-Public Use
  Company Number: US-ELI_LILLY_AND_COMPANY-US201202000699

PATIENT
  Sex: Male

DRUGS (14)
  1. ADVICOR [Concomitant]
     Dosage: 100/40
  2. SUPER B COMPLEX [Concomitant]
     Dosage: UNK, QD
  3. ORAL ANTIDIABETICS [Concomitant]
     Indication: DIABETES MELLITUS
  4. PLAVIX [Concomitant]
     Dosage: 75 MG, UNKNOWN
  5. LANTUS [Concomitant]
     Dosage: 20 U, BEFORE BEDTIME
  6. HUMALOG [Suspect]
     Indication: DIABETES MELLITUS
     Dosage: 5 U, TID
  7. HUMALOG [Suspect]
     Dosage: 5 U, TID
  8. TAMSULOSIN HCL [Concomitant]
     Dosage: 0.4 MG, UNKNOWN
  9. ZETIA [Concomitant]
     Dosage: 10 MG, UNKNOWN
  10. AMLODIPINE BESYLATE AND BENAZEPRIL HCL [Concomitant]
     Dosage: 5/10
  11. COLACE [Concomitant]
     Dosage: 100 MG, QD
  12. METFORMIN HCL [Concomitant]
     Dosage: 500 MG, UNKNOWN
  13. OMEPRAZOLE [Concomitant]
     Dosage: 20 MG, UNKNOWN
  14. ASPIRIN [Concomitant]
     Dosage: 81 MG, QD

REACTIONS (3)
  - CEREBROVASCULAR ACCIDENT [None]
  - AMNESIA [None]
  - VISUAL ACUITY REDUCED [None]
